FAERS Safety Report 5373561-6 (Version None)
Quarter: 2007Q2

REPORT INFORMATION
  Report Type: 
  Country: None (occurrence: None)
  Receive Date: 20070628
  Receipt Date: 20070625
  Transmission Date: 20071010
  Serious: Yes (Other)
  Sender: FDA-Public Use
  Company Number: D0053296A

PATIENT
  Age: 67 Year
  Sex: Male

DRUGS (3)
  1. ARIXTRA [Suspect]
     Indication: PREOPERATIVE CARE
     Route: 065
     Dates: start: 20070405, end: 20070410
  2. MARCUMAR [Concomitant]
     Route: 065
  3. BELOC ZOK [Concomitant]
     Route: 065

REACTIONS (1)
  - SKIN NECROSIS [None]
